FAERS Safety Report 25429968 (Version 1)
Quarter: 2025Q2

REPORT INFORMATION
  Report Type: Spontaneous
  Country: JP (occurrence: JP)
  Receive Date: 20250612
  Receipt Date: 20250612
  Transmission Date: 20250717
  Serious: Yes (Hospitalization, Other)
  Sender: UCB
  Company Number: JP-UCBJ-CD202507570UCBPHAPROD

PATIENT
  Age: 5 Decade
  Sex: Female

DRUGS (5)
  1. VIMPAT [Suspect]
     Active Substance: LACOSAMIDE
     Indication: Partial seizures
     Dosage: UNK UNK, 2X/DAY (BID)
     Route: 048
  2. BRIVIACT [Suspect]
     Active Substance: BRIVARACETAM
     Indication: Partial seizures
     Dosage: 25 MILLIGRAM, 2X/DAY (BID)
     Route: 048
     Dates: start: 202503
  3. BRIVIACT [Suspect]
     Active Substance: BRIVARACETAM
     Dosage: 50 MILLIGRAM, 2X/DAY (BID)
     Route: 048
     Dates: end: 20250526
  4. FYCOMPA [Suspect]
     Active Substance: PERAMPANEL
     Indication: Product used for unknown indication
     Dates: end: 202505
  5. TEGRETOL [Concomitant]
     Active Substance: CARBAMAZEPINE
     Indication: Product used for unknown indication

REACTIONS (1)
  - Partial seizures with secondary generalisation [Recovered/Resolved]

NARRATIVE: CASE EVENT DATE: 20250526
